FAERS Safety Report 12184379 (Version 2)
Quarter: 2017Q3

REPORT INFORMATION
  Report Type: Spontaneous
  Country: FR (occurrence: FR)
  Receive Date: 20160316
  Receipt Date: 20170725
  Transmission Date: 20171127
  Serious: Yes (Death, Hospitalization, Other)
  Sender: FDA-Public Use
  Company Number: FR-BAXTER-2016BAX011429

PATIENT
  Age: 37 Year
  Sex: Female

DRUGS (4)
  1. ENDOXAN 1000 MG, POUDRE POUR SOLUTION INJECTABLE [Suspect]
     Active Substance: CYCLOPHOSPHAMIDE
     Indication: BONE MARROW CONDITIONING REGIMEN
     Dosage: IV INFUSION, D3 TO D4
     Route: 042
     Dates: start: 20141222, end: 20141223
  2. BUSILVEX [Suspect]
     Active Substance: BUSULFAN
     Indication: BONE MARROW CONDITIONING REGIMEN
     Dosage: IV INFUSION, CONCENTRATE FOR INFUSION, D-5 TO D-2
     Route: 042
     Dates: start: 20141213, end: 20141216
  3. TEPADINA [Suspect]
     Active Substance: THIOTEPA
     Indication: BONE MARROW CONDITIONING REGIMEN
     Dosage: D-6, SINGLE INTAKE IV INFUSION, POWDER FOR CONCENTRATE FOR SOLUTION FOR INFUSION
     Route: 042
     Dates: start: 20141212, end: 20141212
  4. FLUDARABINE ACTAVIS [Suspect]
     Active Substance: FLUDARABINE PHOSPHATE
     Indication: BONE MARROW CONDITIONING REGIMEN
     Dosage: IV INFUSION, D-5 TO D-2
     Route: 042
     Dates: start: 20141213, end: 20141216

REACTIONS (8)
  - Hepatic pain [Recovered/Resolved]
  - Hyperbilirubinaemia [Recovered/Resolved]
  - Hyperthermia [Unknown]
  - Ascites [Recovered/Resolved]
  - Cardio-respiratory arrest [Recovered/Resolved]
  - Oedema [Recovered/Resolved]
  - Coma [Fatal]
  - Acute pulmonary oedema [Unknown]

NARRATIVE: CASE EVENT DATE: 20150117
